FAERS Safety Report 11743832 (Version 2)
Quarter: 2016Q4

REPORT INFORMATION
  Report Type: Spontaneous
  Country: JP (occurrence: JP)
  Receive Date: 20151116
  Receipt Date: 20161012
  Transmission Date: 20170206
  Serious: Yes (Death, Hospitalization)
  Sender: FDA-Public Use
  Company Number: JP-MALLINCKRODT-T201505209

PATIENT
  Age: 77 Year
  Sex: Female
  Weight: 47 kg

DRUGS (23)
  1. BAKTAR [Concomitant]
     Active Substance: SULFAMETHOXAZOLE\TRIMETHOPRIM
     Indication: LYMPHOMA
     Dosage: 2 DF
     Route: 048
     Dates: end: 20151021
  2. METHADONE [Suspect]
     Active Substance: METHADONE HYDROCHLORIDE
     Dosage: 2.5 MG (7.5 MG DAILY DOSE)
     Route: 048
     Dates: start: 20150916, end: 20151007
  3. METHADONE [Suspect]
     Active Substance: METHADONE HYDROCHLORIDE
     Dosage: 2.5 MG (5 MG DAILY DOSE)
     Route: 048
     Dates: start: 20151008, end: 20151021
  4. CEPHADOL [Concomitant]
     Active Substance: DIPHENIDOL HYDROCHLORIDE
     Indication: PROPHYLAXIS
     Dosage: 75 MG
     Route: 048
     Dates: end: 20150928
  5. LANSOPRAZOLE OD [Concomitant]
     Active Substance: LANSOPRAZOLE
     Indication: PROPHYLAXIS
     Dosage: 15 MG
     Route: 048
     Dates: end: 20151021
  6. ROZEREM [Concomitant]
     Active Substance: RAMELTEON
     Indication: PROPHYLAXIS
     Dosage: 8 MG
     Route: 048
     Dates: end: 20151008
  7. PANTETHINE [Concomitant]
     Active Substance: PANTETHINE
     Indication: PROPHYLAXIS
     Dosage: 60 MG
     Route: 048
     Dates: start: 20150910, end: 20150930
  8. SERENACE [Concomitant]
     Active Substance: HALOPERIDOL
     Dosage: 1.5 MG
     Route: 048
     Dates: end: 20150913
  9. METHADONE [Suspect]
     Active Substance: METHADONE HYDROCHLORIDE
     Indication: CANCER PAIN
     Dosage: 5 MG (5 MG DAILY DOSE)
     Route: 048
     Dates: start: 20150909, end: 20150915
  10. BIOFERMIN R [Concomitant]
     Active Substance: BACILLUS SUBTILIS\LACTOBACILLUS ACIDOPHILUS\STREPTOCOCCUS FAECAIS
     Indication: PROPHYLAXIS
     Dosage: 3 DF
     Route: 048
     Dates: end: 20151021
  11. CONTOMIN [Concomitant]
     Active Substance: CHLORPROMAZINE
     Dosage: 0.625 MG
     Route: 048
     Dates: start: 20150917, end: 20150927
  12. MAGNESIUM OXIDE. [Concomitant]
     Active Substance: MAGNESIUM OXIDE
     Indication: PROPHYLAXIS
     Dosage: 1000 MG
     Route: 048
     Dates: start: 20150918, end: 20150930
  13. ELNEOPA NO.2 [Concomitant]
     Active Substance: AMINO ACIDS\CARBOHYDRATES\ELECTROLYTES NOS\VITAMINS
     Indication: FLUID REPLACEMENT
     Dosage: 1500 ML
     Route: 051
     Dates: start: 20150909, end: 20151002
  14. TEICOPLANIN [Concomitant]
     Active Substance: TEICOPLANIN
     Indication: PROPHYLAXIS
     Dosage: 400 MG
     Route: 051
     Dates: start: 20150914, end: 20150927
  15. FENTANYL CITRATE. [Concomitant]
     Active Substance: FENTANYL CITRATE
     Indication: ANALGESIC THERAPY
     Dosage: 600 MG
     Route: 042
     Dates: end: 20150910
  16. ACICLOVIR [Concomitant]
     Active Substance: ACYCLOVIR
     Indication: PROPHYLAXIS
     Dosage: 200 MG
     Route: 048
     Dates: end: 20151021
  17. FLUCONAZOLE. [Concomitant]
     Active Substance: FLUCONAZOLE
     Indication: PROPHYLAXIS
     Dosage: 100 MG
     Route: 048
     Dates: end: 20151021
  18. LIXIANA [Concomitant]
     Active Substance: EDOXABAN TOSILATE MONOHYDRATE
     Indication: PROPHYLAXIS
     Dosage: 30 MG
     Route: 048
     Dates: end: 20151021
  19. FENTANYL CITRATE. [Concomitant]
     Active Substance: FENTANYL CITRATE
     Indication: BREAKTHROUGH PAIN
     Dosage: 0.0125 MG PRN
     Route: 051
     Dates: start: 20150908
  20. TSUMURA YOKUKANSAN EXTRACT GRANULES FOR ETHICAL USE [Concomitant]
     Active Substance: HERBALS
     Dosage: 5.0 G
     Route: 048
     Dates: start: 20150917, end: 20150923
  21. BELSOMRA [Concomitant]
     Active Substance: SUVOREXANT
     Dosage: 15 MG
     Route: 048
     Dates: start: 20150911, end: 20151008
  22. ABSTRAL [Concomitant]
     Active Substance: FENTANYL CITRATE
     Indication: BREAKTHROUGH PAIN
     Dosage: 100 ?G, PRN
     Route: 060
     Dates: start: 20150921, end: 20150924
  23. GRAN [Concomitant]
     Active Substance: FILGRASTIM
     Dosage: 75 MCG
     Route: 051
     Dates: start: 20150909, end: 20150918

REACTIONS (3)
  - Altered state of consciousness [Not Recovered/Not Resolved]
  - Somnolence [Not Recovered/Not Resolved]
  - Lymphoma [Fatal]

NARRATIVE: CASE EVENT DATE: 20150924
